FAERS Safety Report 10018196 (Version 1)
Quarter: 2014Q1

REPORT INFORMATION
  Report Type: Spontaneous
  Country: US (occurrence: US)
  Receive Date: 20140318
  Receipt Date: 20140318
  Transmission Date: 20141002
  Serious: No
  Sender: FDA-Public Use
  Company Number: US-BRISTOL-MYERS SQUIBB COMPANY-19202209

PATIENT
  Age: 6 Decade
  Sex: 0

DRUGS (4)
  1. FOLIC ACID [Suspect]
     Indication: COLORECTAL CANCER METASTATIC
     Dates: start: 20130626
  2. 5-FLUOROURACIL [Suspect]
     Indication: COLORECTAL CANCER METASTATIC
     Dates: start: 20130626
  3. IRINOTECAN [Suspect]
     Indication: COLORECTAL CANCER METASTATIC
     Dates: start: 20130626
  4. ERBITUX [Suspect]
     Indication: COLORECTAL CANCER METASTATIC
     Dates: start: 20130626

REACTIONS (2)
  - Stomatitis [Not Recovered/Not Resolved]
  - Aphagia [Unknown]
